FAERS Safety Report 5573016-X (Version None)
Quarter: 2007Q4

REPORT INFORMATION
  Report Type: 
  Country: None (occurrence: None)
  Receive Date: 20071218
  Receipt Date: 20071212
  Transmission Date: 20080405
  Serious: Yes (Life-Threatening)
  Sender: FDA-Public Use
  Company Number: HAPL-008-07-GB

PATIENT
  Age: 53 Year
  Sex: Female

DRUGS (4)
  1. ALBUMIN (HUMAN) [Suspect]
     Indication: HYPOALBUMINAEMIA
     Dates: start: 20071121, end: 20071121
  2. BLOOD (MAMMALIAN BLOOD) [Concomitant]
  3. VOLPLEX (SUCCINYLATED GELATIN) [Concomitant]
  4. VOLUVEN (HYDROXYETHYL STARCH 130/0.4; SODIUM CHLORIDE) [Concomitant]

REACTIONS (1)
  - PULMONARY OEDEMA [None]
